FAERS Safety Report 21145607 (Version 1)
Quarter: 2022Q3

REPORT INFORMATION
  Report Type: Spontaneous
  Country: FR (occurrence: FR)
  Receive Date: 20220729
  Receipt Date: 20220729
  Transmission Date: 20221026
  Serious: Yes (Other)
  Sender: FDA-Public Use
  Company Number: None

PATIENT
  Age: 24 Year
  Sex: Female
  Weight: 53 kg

DRUGS (1)
  1. NEXPLANON [Suspect]
     Active Substance: ETONOGESTREL
     Indication: Hormonal contraception
     Dosage: 1 DOSAGE FORM, ONCE (1 TOTAL); 1 IMPLANT IN PLACE FOR UP TO 3 YEARS; IMPLANT FOR SUBCUTANEOUS  USE
     Route: 058
     Dates: start: 20211203

REACTIONS (2)
  - Drug ineffective [Not Recovered/Not Resolved]
  - Pregnancy on contraceptive [Recovered/Resolved with Sequelae]

NARRATIVE: CASE EVENT DATE: 20220505
